FAERS Safety Report 5171365-0 (Version None)
Quarter: 2006Q4

REPORT INFORMATION
  Report Type: 
  Country: None (occurrence: None)
  Receive Date: 20061213
  Receipt Date: 20061030
  Transmission Date: 20070319
  Serious: Yes (Other)
  Sender: FDA-Public Use
  Company Number: US-AMGEN-STX198507

PATIENT
  Sex: Male
  Weight: 93.1 kg

DRUGS (13)
  1. ENBREL [Suspect]
     Indication: ANKYLOSING SPONDYLITIS
     Route: 058
     Dates: start: 20060126, end: 20060310
  2. REMICADE [Concomitant]
     Dates: start: 20060403
  3. MOTRIN [Concomitant]
  4. PEPCID [Concomitant]
  5. CORGARD [Concomitant]
  6. LORAZEPAM [Concomitant]
  7. TRICOR [Concomitant]
  8. CYMBALTA [Concomitant]
  9. METFORMIN [Concomitant]
  10. ASPIRIN [Concomitant]
  11. OXYCODONE HCL [Concomitant]
  12. OXYCONTIN [Concomitant]
  13. ELAVIL [Concomitant]

REACTIONS (3)
  - BURSITIS [None]
  - METASTASES TO LIVER [None]
  - PANCREATIC CARCINOMA [None]
